FAERS Safety Report 7813219-4 (Version None)
Quarter: 2011Q4

REPORT INFORMATION
  Report Type: 
  Country: None (occurrence: None)
  Receive Date: 20111013
  Receipt Date: 20110930
  Transmission Date: 20120403
  Serious: Yes (Disabling, Other)
  Sender: FDA-Public Use
  Company Number: US-ROCHE-798482

PATIENT
  Weight: 92.8 kg

DRUGS (6)
  1. LIDOCAINE [Concomitant]
     Route: 047
  2. AVASTIN [Suspect]
     Dosage: FREQUENCY: 1
     Route: 050
     Dates: start: 20110812, end: 20110814
  3. OFLOXACIN [Concomitant]
     Route: 047
  4. POVIDONE IODINE [Concomitant]
     Dosage: DRUG: POVIDONE IODINE 5% IN BSS
  5. PIPEROCAINE [Concomitant]
     Route: 047
  6. AVASTIN [Suspect]
     Indication: CYSTOID MACULAR OEDEMA
     Dosage: DOSE 0.15 ML. INJECTION
     Route: 050

REACTIONS (8)
  - BLINDNESS [None]
  - BLINDNESS UNILATERAL [None]
  - VISUAL IMPAIRMENT [None]
  - EYE INFLAMMATION [None]
  - INTRAOCULAR PRESSURE INCREASED [None]
  - PRODUCT QUALITY ISSUE [None]
  - PHOTOPHOBIA [None]
  - EYE PAIN [None]
